FAERS Safety Report 15699728 (Version 11)
Quarter: 2021Q4

REPORT INFORMATION
  Report Type: Spontaneous
  Country: US (occurrence: US)
  Receive Date: 20181207
  Receipt Date: 20211014
  Transmission Date: 20220303
  Serious: Yes (Hospitalization, Other)
  Sender: FDA-Public Use
  Company Number: US-PFIZER INC-2018501453

PATIENT
  Age: 57 Year
  Sex: Female

DRUGS (11)
  1. IBRANCE [Suspect]
     Active Substance: PALBOCICLIB
     Indication: Breast cancer female
     Dosage: 125 MG, CYCLIC (21 DAYS MONTHLY/125 MG PO (ORAL) DAILY X 21 DAYS Q 28 DAYS)
     Route: 048
     Dates: start: 20160505
  2. IBRANCE [Suspect]
     Active Substance: PALBOCICLIB
     Dosage: 125 MG, CYCLIC (DAILY X 21 DAYS,7 DAYS OFF EVERY 28 DAYS)
     Route: 048
     Dates: start: 201609
  3. IBRANCE [Suspect]
     Active Substance: PALBOCICLIB
     Dosage: 125 MG, CYCLIC (QD 21 DAYS Q 28 DAYS)
     Route: 048
     Dates: start: 20171005
  4. CALCIUM [Concomitant]
     Active Substance: CALCIUM
     Dosage: UNK, DAILY
  5. FASLODEX [Concomitant]
     Active Substance: FULVESTRANT
     Dosage: 250 MG/5 ML SYRINGE
  6. FULVESTRANT [Concomitant]
     Active Substance: FULVESTRANT
     Indication: Breast cancer metastatic
     Dosage: 500 MG, UNK [Q 28 DAYS]
     Route: 030
     Dates: start: 20170418
  7. PANTOPRAZOLE [Concomitant]
     Active Substance: PANTOPRAZOLE
     Indication: Gastrooesophageal reflux disease
     Dosage: 40 MG, 1X/DAY
     Dates: start: 20181211
  8. MAGNESIUM CHLORIDE [Concomitant]
     Active Substance: MAGNESIUM CHLORIDE
     Dosage: UNK, DAILY
  9. VITAMIN B [Concomitant]
     Active Substance: VITAMIN B
     Dosage: UNK, DAILY
  10. CHOLECALCIFEROL [Concomitant]
     Active Substance: CHOLECALCIFEROL
     Dosage: UNK
  11. XANAX [Concomitant]
     Active Substance: ALPRAZOLAM
     Dosage: UNK

REACTIONS (6)
  - Vomiting [Recovered/Resolved]
  - Alopecia [Not Recovered/Not Resolved]
  - Product dose omission issue [Unknown]
  - Gastric disorder [Not Recovered/Not Resolved]
  - Fatigue [Not Recovered/Not Resolved]
  - Nausea [Not Recovered/Not Resolved]

NARRATIVE: CASE EVENT DATE: 20170101
